FAERS Safety Report 5767711-7 (Version None)
Quarter: 2008Q2

REPORT INFORMATION
  Report Type: 
  Country: None (occurrence: None)
  Receive Date: 20080610
  Receipt Date: 20080528
  Transmission Date: 20081010
  Serious: Yes (Hospitalization)
  Sender: FDA-Public Use
  Company Number: 2008014231

PATIENT
  Sex: Female

DRUGS (1)
  1. CETIRIZINE HYDROCHLORIDE (CETIRIZINE HYDROCHLORIDE) [Suspect]
     Indication: PRURITUS
     Dosage: 10 MG, ORAL
     Route: 048
     Dates: end: 20080527

REACTIONS (4)
  - GENERALISED OEDEMA [None]
  - HYPONATRAEMIA [None]
  - THIRST [None]
  - WATER INTOXICATION [None]
